FAERS Safety Report 4338974-X (Version None)
Quarter: 2004Q2

REPORT INFORMATION
  Report Type: 
  Country: None (occurrence: None)
  Receive Date: 20040409
  Receipt Date: 20030807
  Transmission Date: 20050107
  Serious: Yes (Hospitalization)
  Sender: FDA-Public Use
  Company Number: TEST00203001536

PATIENT
  Age: 76 Year
  Sex: Male

DRUGS (9)
  1. ANDROGEL [Suspect]
     Indication: HYPOGONADISM MALE
     Dosage: 5 G DAILY TD
     Dates: start: 20030129, end: 20030525
  2. ANDROGEL [Suspect]
     Indication: HYPOGONADISM MALE
     Dosage: 5 G DAILY TD
     Dates: start: 20030608, end: 20030723
  3. LEVOTHROID [Concomitant]
  4. FLOMAX [Concomitant]
  5. NEURONTIN [Concomitant]
  6. ATENOLOL [Concomitant]
  7. DIGOXIN [Concomitant]
  8. STARLIX [Concomitant]
  9. COZAAR [Concomitant]

REACTIONS (4)
  - ASTHENIA [None]
  - MOVEMENT DISORDER [None]
  - URINARY TRACT INFECTION [None]
  - VIRAL INFECTION [None]
